FAERS Safety Report 6713967-3 (Version None)
Quarter: 2010Q2

REPORT INFORMATION
  Report Type: 
  Country: None (occurrence: None)
  Receive Date: 20100506
  Receipt Date: 20100426
  Transmission Date: 20101027
  Serious: Yes (Other)
  Sender: FDA-Public Use
  Company Number: US-JNJFOC-20100406981

PATIENT
  Sex: Male
  Weight: 72.58 kg

DRUGS (9)
  1. REMICADE [Suspect]
     Indication: CROHN'S DISEASE
     Dosage: 6TH INFUSION (DOSE UNSPECIFIED)
     Route: 042
  2. REMICADE [Suspect]
     Dosage: DOSE UNPECIFIED
     Route: 042
  3. REMICADE [Suspect]
     Dosage: DOSE AND FREQUENCY UNPECIFIED
     Route: 042
  4. TYLENOL-500 [Concomitant]
  5. BENADRYL [Concomitant]
     Indication: PREMEDICATION
  6. FLOVENT [Concomitant]
     Indication: ASTHMA
  7. VITAMIN TAB [Concomitant]
     Dosage: DAILY
  8. CALCIUM [Concomitant]
  9. PROBIOTIC [Concomitant]

REACTIONS (6)
  - DYSPNOEA [None]
  - ERYTHEMA [None]
  - EYE SWELLING [None]
  - OCULAR HYPERAEMIA [None]
  - SWELLING FACE [None]
  - THERAPEUTIC RESPONSE DECREASED [None]
